FAERS Safety Report 7055201-3 (Version None)
Quarter: 2010Q4

REPORT INFORMATION
  Report Type: 
  Country: None (occurrence: None)
  Receive Date: 20101021
  Receipt Date: 20101013
  Transmission Date: 20110411
  Serious: Yes (Death, Hospitalization)
  Sender: FDA-Public Use
  Company Number: JP-GENZYME-THYM-1001930

PATIENT
  Sex: Male
  Weight: 57 kg

DRUGS (16)
  1. THYMOGLOBULIN [Suspect]
     Indication: BONE MARROW CONDITIONING REGIMEN
     Dosage: 57 MG, QD
     Route: 042
     Dates: start: 20100412, end: 20100414
  2. THYMOGLOBULIN [Suspect]
     Dosage: 50 MG, QD
     Route: 042
     Dates: start: 20100830, end: 20100901
  3. FLUDARABINE PHOSPHATE [Concomitant]
     Indication: PREMEDICATION
     Dosage: UNK
     Route: 065
     Dates: start: 20100405, end: 20100410
  4. FLUDARABINE PHOSPHATE [Concomitant]
     Dosage: UNK
     Dates: start: 20100825, end: 20100829
  5. CYTARABINE [Concomitant]
     Indication: PREMEDICATION
     Dosage: UNK
     Route: 065
     Dates: start: 20100405, end: 20100408
  6. MICAFUNGIN SODIUM [Concomitant]
     Indication: ANTIFUNGAL PROPHYLAXIS
     Dosage: UNK
     Route: 065
     Dates: start: 20100405
  7. MICAFUNGIN SODIUM [Concomitant]
     Dosage: UNK
     Route: 065
     Dates: start: 20100904, end: 20100905
  8. BUSULFAN [Concomitant]
     Indication: PREMEDICATION
     Dosage: UNK
     Route: 065
     Dates: start: 20100409, end: 20100410
  9. ACICLOVIR [Concomitant]
     Indication: ANTIVIRAL PROPHYLAXIS
     Dosage: UNK
     Route: 065
     Dates: start: 20100409, end: 20100506
  10. METHYLPREDNISOLON NATRIUM SUCCINAAT MAYNE [Concomitant]
     Indication: PREMEDICATION
     Dosage: UNK
     Route: 065
     Dates: start: 20100412, end: 20100419
  11. METHYLPREDNISOLON NATRIUM SUCCINAAT MAYNE [Concomitant]
     Dosage: UNK
     Dates: start: 20100830, end: 20100905
  12. FILGRASTIM [Concomitant]
     Indication: INFECTION PROPHYLAXIS
     Dosage: UNK
     Route: 065
     Dates: start: 20100419, end: 20100515
  13. CEFEPIME HYDROCHLORIDE [Concomitant]
     Indication: ANTIBIOTIC PROPHYLAXIS
     Dosage: UNK
     Route: 065
     Dates: start: 20100409, end: 20100506
  14. TACROLIMUS [Concomitant]
     Indication: PROPHYLAXIS AGAINST GRAFT VERSUS HOST DISEASE
     Dosage: UNK
     Route: 065
     Dates: start: 20100415, end: 20100515
  15. TACROLIMUS [Concomitant]
     Dosage: UNK
     Route: 065
     Dates: start: 20100901, end: 20100905
  16. MELPHALAN HYDROCHLORIDE [Concomitant]
     Indication: PREMEDICATION
     Dosage: UNK
     Route: 065
     Dates: start: 20100825, end: 20100825

REACTIONS (3)
  - ENGRAFT FAILURE [None]
  - PULMONARY HAEMORRHAGE [None]
  - STENOTROPHOMONAS INFECTION [None]
